FAERS Safety Report 9381217 (Version 32)
Quarter: 2018Q2

REPORT INFORMATION
  Report Type: Report from Study
  Country: CA (occurrence: CA)
  Receive Date: 20130703
  Receipt Date: 20180404
  Transmission Date: 20180711
  Serious: Yes (Other)
  Sender: FDA-Public Use
  Company Number: CA-ROCHE-1241840

PATIENT
  Age: 55 Year
  Sex: Female
  Weight: 89.4 kg

DRUGS (23)
  1. RITUXAN [Suspect]
     Active Substance: RITUXIMAB
     Indication: RHEUMATOID ARTHRITIS
     Dosage: LAST DOSE ON 10/APR/2014?MOST RECENT DOSE OF RITUXIMAB: 22/MAR/2016.
     Route: 042
     Dates: start: 20101125, end: 20161011
  2. METHYLPREDNISOLONE. [Concomitant]
     Active Substance: METHYLPREDNISOLONE
     Indication: PREMEDICATION
     Route: 042
     Dates: start: 20101125, end: 20161011
  3. SYMBICORT [Concomitant]
     Active Substance: BUDESONIDE\FORMOTEROL FUMARATE DIHYDRATE
  4. SPIRIVA [Concomitant]
     Active Substance: TIOTROPIUM BROMIDE MONOHYDRATE
  5. FERROUS GLUCONATE [Concomitant]
     Active Substance: FERROUS GLUCONATE
  6. LOSEC [Concomitant]
     Active Substance: OMEPRAZOLE
  7. LEFLUNOMIDE. [Concomitant]
     Active Substance: LEFLUNOMIDE
     Route: 065
  8. DIPHENHYDRAMINE HCL [Concomitant]
     Active Substance: DIPHENHYDRAMINE HYDROCHLORIDE
     Indication: PREMEDICATION
     Route: 048
     Dates: start: 20101125, end: 20161011
  9. ARAVA [Concomitant]
     Active Substance: LEFLUNOMIDE
  10. COVERSYL [Concomitant]
     Active Substance: PERINDOPRIL
     Route: 065
  11. ACIDOPHILUS [Concomitant]
     Active Substance: LACTOBACILLUS ACIDOPHILUS
  12. ACETAMINOPHEN. [Concomitant]
     Active Substance: ACETAMINOPHEN
     Route: 048
     Dates: start: 20101125, end: 20101207
  13. VENTOLIN [Concomitant]
     Active Substance: ALBUTEROL SULFATE
  14. ROBAXISAL-C [Concomitant]
  15. ACTONEL [Concomitant]
     Active Substance: RISEDRONATE SODIUM
     Route: 065
  16. ENDOCET [Concomitant]
     Active Substance: ACETAMINOPHEN\OXYCODONE HYDROCHLORIDE
  17. PREDNISONE. [Concomitant]
     Active Substance: PREDNISONE
  18. RITUXAN [Suspect]
     Active Substance: RITUXIMAB
     Route: 042
     Dates: start: 20121220
  19. ACETAMINOPHEN. [Concomitant]
     Active Substance: ACETAMINOPHEN
     Indication: PREMEDICATION
     Route: 048
     Dates: start: 20110901, end: 20161011
  20. ROSUVASTATIN. [Concomitant]
     Active Substance: ROSUVASTATIN
  21. PERCOCET [Concomitant]
     Active Substance: ACETAMINOPHEN\OXYCODONE HYDROCHLORIDE
  22. EFFEXOR [Concomitant]
     Active Substance: VENLAFAXINE HYDROCHLORIDE
     Route: 065
  23. AMITRIPTYLINE [Concomitant]
     Active Substance: AMITRIPTYLINE

REACTIONS (44)
  - Tendon rupture [Recovered/Resolved]
  - Arthropathy [Unknown]
  - Ill-defined disorder [Unknown]
  - Peripheral swelling [Unknown]
  - Hypophagia [Unknown]
  - Paraesthesia [Not Recovered/Not Resolved]
  - Myoclonus [Unknown]
  - Arthritis [Not Recovered/Not Resolved]
  - Incision site erythema [Not Recovered/Not Resolved]
  - Musculoskeletal stiffness [Not Recovered/Not Resolved]
  - Diarrhoea [Not Recovered/Not Resolved]
  - Device breakage [Unknown]
  - Lung disorder [Not Recovered/Not Resolved]
  - X-ray limb abnormal [Not Recovered/Not Resolved]
  - Hypertension [Unknown]
  - Osteoarthritis [Recovered/Resolved]
  - Post procedural infection [Not Recovered/Not Resolved]
  - Joint swelling [Unknown]
  - C-reactive protein increased [Unknown]
  - Musculoskeletal discomfort [Not Recovered/Not Resolved]
  - Procedural site reaction [Not Recovered/Not Resolved]
  - Fatigue [Unknown]
  - Blood pressure increased [Unknown]
  - Chronic obstructive pulmonary disease [Unknown]
  - Mobility decreased [Not Recovered/Not Resolved]
  - Fatigue [Unknown]
  - Rheumatoid arthritis [Not Recovered/Not Resolved]
  - Alopecia [Not Recovered/Not Resolved]
  - Pain [Not Recovered/Not Resolved]
  - Muscle disorder [Unknown]
  - Blood cholesterol increased [Unknown]
  - Arthralgia [Not Recovered/Not Resolved]
  - Drug ineffective [Unknown]
  - Ill-defined disorder [Unknown]
  - Gait inability [Unknown]
  - Oedema peripheral [Not Recovered/Not Resolved]
  - Ligament rupture [Recovered/Resolved]
  - Mass [Not Recovered/Not Resolved]
  - Pain in extremity [Not Recovered/Not Resolved]
  - Hypotension [Unknown]
  - Impaired healing [Recovered/Resolved]
  - Swelling face [Unknown]
  - Weight decreased [Not Recovered/Not Resolved]
  - Blood pressure fluctuation [Unknown]

NARRATIVE: CASE EVENT DATE: 2013
